FAERS Safety Report 7683246-9 (Version None)
Quarter: 2011Q3

REPORT INFORMATION
  Report Type: 
  Country: None (occurrence: None)
  Receive Date: 20110815
  Receipt Date: 20110804
  Transmission Date: 20111222
  Serious: Yes (Hospitalization, Other)
  Sender: FDA-Public Use
  Company Number: KR-BAYER-2011-036539

PATIENT
  Age: 44 Year
  Sex: Male
  Weight: 71.2 kg

DRUGS (47)
  1. MEK INHIBITOR (DIHYDROXYPROP-DIFLU-METHOXYPHEN-CYCLOPROPA-SULFAMI) [Suspect]
     Dosage: 50 MG, BID
     Route: 048
     Dates: start: 20110319, end: 20110328
  2. MEK INHIBITOR (DIHYDROXYPROP-DIFLU-METHOXYPHEN-CYCLOPROPA-SULFAMI) [Suspect]
     Dosage: 50 MG, QD
     Route: 048
     Dates: start: 20110511, end: 20110511
  3. MEK INHIBITOR (DIHYDROXYPROP-DIFLU-METHOXYPHEN-CYCLOPROPA-SULFAMI) [Suspect]
     Dosage: 50 MG, BID
     Route: 048
     Dates: start: 20110512, end: 20110714
  4. SORAFENIB (RAF KINASE INHIBITOR) [Suspect]
     Dosage: 600MG (200/400MG QD)
     Route: 048
     Dates: start: 20110319, end: 20110407
  5. SORAFENIB (RAF KINASE INHIBITOR) [Suspect]
     Dosage: 400 MG, BID
     Route: 048
     Dates: start: 20110512, end: 20110714
  6. MEGESTROL ACETATE [Concomitant]
     Indication: PROPHYLAXIS
     Dosage: 20 ML, QD
     Route: 048
     Dates: start: 20110320, end: 20110414
  7. LACTICARE HC [Concomitant]
     Indication: PALMAR-PLANTAR ERYTHRODYSAESTHESIA SYNDROME
     Dosage: PRN
     Route: 061
     Dates: start: 20110325, end: 20110502
  8. LACTICARE HC [Concomitant]
     Dosage: PRN
     Route: 061
     Dates: start: 20110722
  9. KLENZO SOLUTION [Concomitant]
     Indication: DECREASED APPETITE
     Dosage: UNK UNK, PRN
     Route: 048
     Dates: start: 20110701, end: 20110714
  10. MEK INHIBITOR (DIHYDROXYPROP-DIFLU-METHOXYPHEN-CYCLOPROPA-SULFAMI) [Suspect]
     Dosage: 50 MG, QD
     Route: 048
     Dates: start: 20110715, end: 20110715
  11. SORAFENIB (RAF KINASE INHIBITOR) [Suspect]
     Dosage: 400 MG, BID
     Route: 048
     Dates: start: 20110408, end: 20110428
  12. DESOWEN [Concomitant]
     Indication: PALMAR-PLANTAR ERYTHRODYSAESTHESIA SYNDROME
     Dosage: UNK UNK, PRN
     Route: 061
     Dates: start: 20110503, end: 20110522
  13. HYDROCORTISONE BUTYRATE PROPIONATE [Concomitant]
     Indication: PALMAR-PLANTAR ERYTHRODYSAESTHESIA SYNDROME
     Dosage: UNK UNK, PRN
     Route: 061
     Dates: start: 20110505, end: 20110522
  14. MUCOGEL [Concomitant]
     Indication: GASTRIC ULCER
     Dosage: 12 G, TID
     Route: 048
     Dates: start: 20110701, end: 20110714
  15. BACTROBAN [Concomitant]
     Indication: EXCORIATION
     Dosage: UNK, PRN
     Route: 061
     Dates: start: 20110725
  16. MEK INHIBITOR (DIHYDROXYPROP-DIFLU-METHOXYPHEN-CYCLOPROPA-SULFAMI) [Suspect]
     Dosage: 50 MG, QD
     Route: 048
     Dates: start: 20110429, end: 20110429
  17. SORAFENIB (RAF KINASE INHIBITOR) [Suspect]
     Dosage: 400 MG, QD
     Route: 048
     Dates: start: 20110429, end: 20110429
  18. SORAFENIB (RAF KINASE INHIBITOR) [Suspect]
     Dosage: 400 MG, QD
     Route: 048
     Dates: start: 20110715, end: 20110715
  19. ULTRAVIST 150 [Concomitant]
     Indication: COMPUTERISED TOMOGRAM
     Dosage: 140 ML, ONCE
     Route: 042
     Dates: start: 20100314, end: 20100314
  20. LIVACT [Concomitant]
     Indication: PROPHYLAXIS
     Dosage: 4.15 G, TID
     Route: 048
     Dates: start: 20101112
  21. TEPRENONE [Concomitant]
     Indication: GASTRIC ULCER
     Dosage: 50 MG, TID
     Route: 048
     Dates: start: 20101123
  22. ANTIBIOTICS [Concomitant]
     Indication: ANTIBIOTIC PROPHYLAXIS
     Dosage: 300 MG, TID
     Route: 048
     Dates: start: 20101123
  23. GASMOTIN [Concomitant]
     Dosage: 5 MG, QD
     Route: 048
     Dates: start: 20110318, end: 20110318
  24. LOPERAMIDE HCL [Concomitant]
     Dosage: 2 MG, PRN
     Route: 048
     Dates: start: 20110422, end: 20110726
  25. NORVASC [Concomitant]
     Indication: HYPERTENSION
     Dosage: 5 MG, QD
     Route: 048
     Dates: start: 20110401, end: 20110714
  26. TELMISARTAN [Concomitant]
     Indication: HYPERTENSION
     Dosage: 40 MG, QD
     Route: 048
     Dates: start: 20110408, end: 20110727
  27. XYZAL [Concomitant]
     Indication: PALMAR-PLANTAR ERYTHRODYSAESTHESIA SYNDROME
     Dosage: 5 MG, QD
     Route: 048
     Dates: start: 20110504, end: 20110522
  28. PANTOPRAZOLE SODIUM [Concomitant]
     Indication: GASTRIC ULCER
     Dosage: 20 MG, QD
     Route: 048
     Dates: start: 20110613, end: 20110714
  29. TANTUM [Concomitant]
     Indication: PROPHYLAXIS
     Dosage: UNK UNK, PRN
     Dates: start: 20110725
  30. ULTRAVIST 150 [Concomitant]
     Dosage: 140 ML, ONCE
     Route: 042
     Dates: start: 20110603, end: 20110603
  31. HEPADIAL [DIMECROTIC ACID] [Concomitant]
     Indication: GASTRIC ULCER
     Dosage: 50 MG, TID
     Route: 048
     Dates: start: 20101123, end: 20110324
  32. GASMOTIN [Concomitant]
     Indication: GASTRIC ULCER
     Dosage: 5 MG, QD
     Route: 048
     Dates: start: 20110317, end: 20110317
  33. METOCLOPRAMIDE [Concomitant]
     Indication: NAUSEA
     Dosage: 10 MG, QD
     Route: 042
     Dates: start: 20110422, end: 20110422
  34. SORAFENIB (RAF KINASE INHIBITOR) [Suspect]
     Indication: HEPATIC NEOPLASM MALIGNANT
     Dosage: 400 MG, QD
     Route: 048
     Dates: start: 20110318, end: 20110318
  35. BARACLUDE [Concomitant]
     Indication: HEPATITIS B
     Dosage: 0.5 MG, QD
     Route: 048
     Dates: start: 20101110
  36. SMECTA [SMECTITE] [Concomitant]
     Indication: DIARRHOEA
     Dosage: 20 ML, TID
     Route: 048
     Dates: start: 20110322, end: 20110323
  37. SORAFENIB (RAF KINASE INHIBITOR) [Suspect]
     Dosage: 400 MG, QD
     Route: 048
     Dates: start: 20110511, end: 20110511
  38. ULTRAVIST 150 [Concomitant]
     Dosage: 140 ML, ONCE
     Route: 042
     Dates: start: 20110715, end: 20110715
  39. MEGESTROL ACETATE [Concomitant]
     Dosage: 20 ML, QD
     Route: 048
     Dates: start: 20110508, end: 20110522
  40. ALLEGRA [Concomitant]
     Indication: DIARRHOEA
     Dosage: 180 MG, QD
     Route: 048
     Dates: start: 20110325
  41. MEK INHIBITOR (DIHYDROXYPROP-DIFLU-METHOXYPHEN-CYCLOPROPA-SULFAMI) [Suspect]
     Indication: HEPATIC NEOPLASM MALIGNANT
     Dosage: 50 MG, QD
     Route: 048
     Dates: start: 20110318, end: 20110318
  42. ULTRAVIST 150 [Concomitant]
     Dosage: 140 ML, ONCE
     Route: 042
     Dates: start: 20110718, end: 20110718
  43. KLENZO SOLUTION [Concomitant]
     Indication: PROPHYLAXIS
     Dosage: UNK UNK, PRN
     Route: 048
     Dates: start: 20110725
  44. ULTRAVIST 150 [Concomitant]
     Dosage: 140 ML, ONCE
     Route: 042
     Dates: start: 20110422, end: 20110422
  45. HEPATAMINE [Concomitant]
     Indication: MEDICAL DIET
     Dosage: 500 ML, QD
     Route: 042
     Dates: start: 20110311, end: 20110311
  46. LOPERAMIDE HCL [Concomitant]
     Indication: DIARRHOEA
     Dosage: 2 MG, TID
     Route: 048
     Dates: start: 20110322, end: 20110323
  47. PANTOPRAZOLE SODIUM [Concomitant]
     Dosage: 40 MG, QD
     Route: 048
     Dates: start: 20110715

REACTIONS (11)
  - LEFT VENTRICULAR DYSFUNCTION [None]
  - MYOGLOBIN BLOOD INCREASED [None]
  - HEPATIC ENZYME INCREASED [None]
  - BLOOD CREATINE PHOSPHOKINASE INCREASED [None]
  - C-REACTIVE PROTEIN INCREASED [None]
  - MYOPATHY [None]
  - MUSCULAR WEAKNESS [None]
  - MUSCLE ENZYME INCREASED [None]
  - FALL [None]
  - EXCORIATION [None]
  - BLOOD LACTATE DEHYDROGENASE INCREASED [None]
